FAERS Safety Report 4381569-2 (Version None)
Quarter: 2004Q2

REPORT INFORMATION
  Report Type: 
  Country: None (occurrence: None)
  Receive Date: 20040616
  Receipt Date: 20040602
  Transmission Date: 20050107
  Serious: Yes (Hospitalization)
  Sender: FDA-Public Use
  Company Number: 2004-BP-04299BP

PATIENT
  Sex: 0

DRUGS (9)
  1. MIRAPEX [Suspect]
     Indication: PARKINSON'S DISEASE
     Dosage: 10 MG (SEE TEXT, 2.5 MG, QID (0.5 MG 1 TABLET AND 1 M G 2 TABLETS QID), PO
     Route: 048
     Dates: start: 20040218, end: 20040526
  2. MIRAPEX [Suspect]
     Indication: PARKINSON'S DISEASE
     Dosage: 10 MG (SEE TEXT, 2.5 MG, QID (0.5 MG 1 TABLET AND 1 M G 2 TABLETS QID), PO
     Route: 048
     Dates: start: 19890101
  3. SYMMETREL [Concomitant]
  4. GLUCOTROL [Concomitant]
  5. OSCAL (CALCIUM CARBONATE) [Concomitant]
  6. MEXIN [Concomitant]
  7. TENORMIN [Concomitant]
  8. VIOXX [Concomitant]
  9. SINEMET [Concomitant]

REACTIONS (3)
  - BLOOD PRESSURE INCREASED [None]
  - HALLUCINATION [None]
  - MEDICATION ERROR [None]
